FAERS Safety Report 9469374 (Version 1)
Quarter: 2013Q3

REPORT INFORMATION
  Report Type: Spontaneous
  Country: DK (occurrence: DE)
  Receive Date: 20130821
  Receipt Date: 20130821
  Transmission Date: 20140515
  Serious: Yes (Hospitalization, Other)
  Sender: FDA-Public Use
  Company Number: DE-FRI-1000047918

PATIENT
  Age: 0 None
  Sex: Male
  Weight: 3.3 kg

DRUGS (2)
  1. CITALOPRAM [Suspect]
     Indication: DEPRESSION
     Dosage: OVERDOSE: 60 MG
     Route: 064
     Dates: start: 20090101, end: 20090919
  2. QUETIAPINE [Suspect]
     Indication: DEPRESSION
     Dosage: 600 MG
     Route: 064
     Dates: start: 20090101, end: 20090919

REACTIONS (5)
  - Agitation neonatal [Recovering/Resolving]
  - Neonatal respiratory distress syndrome [Recovered/Resolved]
  - Oxygen saturation decreased [Recovered/Resolved]
  - Foetal exposure during pregnancy [Recovered/Resolved]
  - Prescribed overdose [Recovered/Resolved]
